FAERS Safety Report 12471587 (Version 1)
Quarter: 2016Q2

REPORT INFORMATION
  Report Type: Spontaneous
  Country: US (occurrence: None)
  Receive Date: 20160615
  Receipt Date: 20160615
  Transmission Date: 20160815
  Serious: Yes (Hospitalization)
  Sender: FDA-Public Use
  Company Number: None

PATIENT
  Age: 42 Year
  Sex: Female
  Weight: 149.7 kg

DRUGS (4)
  1. JUNEL FE 1/20 [Suspect]
     Active Substance: ETHINYL ESTRADIOL\NORETHINDRONE ACETATE
     Indication: CONTRACEPTION
     Dosage: 1 TABLET DAILY PO
     Route: 048
  2. LOPRESSOR [Concomitant]
     Active Substance: METOPROLOL TARTRATE
  3. TRAMADOL. [Concomitant]
     Active Substance: TRAMADOL
  4. FLONASE [Concomitant]
     Active Substance: FLUTICASONE PROPIONATE

REACTIONS (6)
  - Mobility decreased [None]
  - Pain in extremity [None]
  - Deep vein thrombosis [None]
  - Dyspnoea [None]
  - Ligament sprain [None]
  - Pulmonary embolism [None]

NARRATIVE: CASE EVENT DATE: 20150916
